FAERS Safety Report 14127319 (Version 4)
Quarter: 2018Q2

REPORT INFORMATION
  Report Type: Spontaneous
  Country: US (occurrence: US)
  Receive Date: 20171026
  Receipt Date: 20180419
  Transmission Date: 20180711
  Serious: Yes (Other)
  Sender: FDA-Public Use
  Company Number: US-009507513-1710USA012182

PATIENT
  Age: 79 Year
  Sex: Female

DRUGS (3)
  1. KEYTRUDA [Suspect]
     Active Substance: PEMBROLIZUMAB
     Dosage: UNK
     Route: 042
     Dates: start: 20171108
  2. KEYTRUDA [Suspect]
     Active Substance: PEMBROLIZUMAB
     Indication: ENDOMETRIAL CANCER
     Dosage: UNK
     Route: 042
     Dates: start: 20171011
  3. KEYTRUDA [Suspect]
     Active Substance: PEMBROLIZUMAB
     Dosage: UNK
     Route: 042
     Dates: start: 20171204

REACTIONS (16)
  - Asthenia [Recovering/Resolving]
  - Rash pruritic [Not Recovered/Not Resolved]
  - Nausea [Unknown]
  - Cough [Recovering/Resolving]
  - Diarrhoea [Recovering/Resolving]
  - Chromaturia [Recovered/Resolved]
  - Chills [Recovered/Resolved]
  - Fatigue [Recovering/Resolving]
  - Dry mouth [Recovering/Resolving]
  - Contusion [Recovering/Resolving]
  - Pyrexia [Recovering/Resolving]
  - Thirst [Recovering/Resolving]
  - Chest pain [Recovering/Resolving]
  - Malignant neoplasm progression [Recovering/Resolving]
  - Increased tendency to bruise [Recovered/Resolved]
  - Fall [Unknown]

NARRATIVE: CASE EVENT DATE: 2017
